FAERS Safety Report 7540107-3 (Version None)
Quarter: 2011Q2

REPORT INFORMATION
  Report Type: 
  Country: None (occurrence: None)
  Receive Date: 20110610
  Receipt Date: 20110608
  Transmission Date: 20111010
  Serious: Yes (Other)
  Sender: FDA-Public Use
  Company Number: US-PFIZER INC-US-WYE-H04493208

PATIENT
  Sex: Female
  Weight: 70 kg

DRUGS (3)
  1. PREMPRO [Suspect]
     Indication: HORMONE REPLACEMENT THERAPY
     Dosage: UNK
     Dates: start: 19990201, end: 20050801
  2. PROPRANOLOL [Concomitant]
     Indication: TREMOR
     Dosage: UNK
     Dates: start: 20030101
  3. FOSAMAX [Concomitant]
     Indication: OSTEOPOROSIS
     Dosage: UNK
     Dates: start: 20040101, end: 20100101

REACTIONS (1)
  - BREAST CANCER METASTATIC [None]
